FAERS Safety Report 10490405 (Version 1)
Quarter: 2014Q4

REPORT INFORMATION
  Report Type: Spontaneous
  Country: US (occurrence: US)
  Receive Date: 20141002
  Receipt Date: 20141002
  Transmission Date: 20150528
  Serious: Yes (Congenital Anomaly)
  Sender: FDA-Public Use
  Company Number: US-FRI-1000071073

PATIENT
  Sex: Female

DRUGS (1)
  1. LEXAPRO [Suspect]
     Active Substance: ESCITALOPRAM OXALATE
     Dates: end: 20100923

REACTIONS (7)
  - Umbilical cord abnormality [Unknown]
  - Right aortic arch [Unknown]
  - Patent ductus arteriosus [Unknown]
  - Fallot^s tetralogy [Unknown]
  - Pulmonary hypoplasia [Unknown]
  - Ventricular septal defect [Unknown]
  - Low set ears [Unknown]
